FAERS Safety Report 22343349 (Version 1)
Quarter: 2023Q2

REPORT INFORMATION
  Report Type: Spontaneous
  Country: US (occurrence: US)
  Receive Date: 20230519
  Receipt Date: 20230519
  Transmission Date: 20230721
  Serious: No
  Sender: FDA-Public Use
  Company Number: US-CADILA HEALTHCARE LIMITED-US-ZYDUS-077576

PATIENT

DRUGS (2)
  1. TOPIRAMATE [Suspect]
     Active Substance: TOPIRAMATE
     Indication: Migraine
     Dosage: 325 325, QD
     Route: 048
     Dates: start: 20220324, end: 20220406
  2. TOPIRAMATE [Suspect]
     Active Substance: TOPIRAMATE
     Dosage: 450 450, QD
     Route: 048
     Dates: start: 20220407, end: 20220416

REACTIONS (4)
  - Gait disturbance [Recovering/Resolving]
  - Anxiety [Not Recovered/Not Resolved]
  - Hypersexuality [Unknown]
  - Mobility decreased [Recovering/Resolving]

NARRATIVE: CASE EVENT DATE: 20220407
